FAERS Safety Report 5958103-6 (Version None)
Quarter: 2008Q4

REPORT INFORMATION
  Report Type: 
  Country: None (occurrence: None)
  Receive Date: 20081119
  Receipt Date: 20081113
  Transmission Date: 20090506
  Serious: Yes (Other)
  Sender: FDA-Public Use
  Company Number: B0546864A

PATIENT
  Sex: Male

DRUGS (3)
  1. REQUIP DEPOT [Suspect]
     Indication: PARKINSON'S DISEASE
     Dosage: 2MG PER DAY
     Route: 065
     Dates: start: 20080908
  2. SIFROL [Concomitant]
     Indication: PARKINSON'S DISEASE
     Dosage: .72MG THREE TIMES PER DAY
     Route: 065
  3. ELDEPRYL [Concomitant]
     Indication: PARKINSON'S DISEASE
     Dosage: 5MG PER DAY

REACTIONS (5)
  - AGITATION [None]
  - INSOMNIA [None]
  - MUSCLE SPASMS [None]
  - PALPITATIONS [None]
  - PARKINSON'S DISEASE [None]
